FAERS Safety Report 25955492 (Version 1)
Quarter: 2025Q4

REPORT INFORMATION
  Report Type: Spontaneous
  Country: EU (occurrence: EU)
  Receive Date: 20251024
  Receipt Date: 20251024
  Transmission Date: 20260118
  Serious: Yes (Other)
  Sender: AUROBINDO
  Company Number: EU-AUROBINDO-AUR-APL-2018-034113

PATIENT
  Age: 63 Year
  Sex: Male

DRUGS (5)
  1. DOCETAXEL [Suspect]
     Active Substance: DOCETAXEL
     Indication: Metastatic salivary gland cancer
     Dosage: EVERY 3 WEEKS ; CYCLICAL
     Route: 042
  2. PERTUZUMAB [Suspect]
     Active Substance: PERTUZUMAB
     Indication: Metastatic salivary gland cancer
     Dosage: LOADING DOSE ; CYCLICAL
     Route: 042
  3. PERTUZUMAB [Suspect]
     Active Substance: PERTUZUMAB
     Dosage: EVERY 3 WEEKS ; CYCLICAL
     Route: 042
  4. TRASTUZUMAB [Suspect]
     Active Substance: TRASTUZUMAB
     Indication: Metastatic salivary gland cancer
     Dosage: EVERY 3 WEEKS ; CYCLICAL
     Route: 058
  5. DEXAMETHASONE [Concomitant]
     Active Substance: DEXAMETHASONE
     Indication: Dermatitis
     Dosage: UNK
     Route: 065

REACTIONS (4)
  - Pharyngeal abscess [Unknown]
  - Abscess of external ear [Unknown]
  - Radiation injury [Unknown]
  - Dermatitis [Recovered/Resolved]
